FAERS Safety Report 4825290-2 (Version None)
Quarter: 2005Q4

REPORT INFORMATION
  Report Type: 
  Country: None (occurrence: None)
  Receive Date: 20051109
  Receipt Date: 20051027
  Transmission Date: 20060501
  Serious: Yes (Hospitalization)
  Sender: FDA-Public Use
  Company Number: 2005148250

PATIENT

DRUGS (1)
  1. UNASYN [Suspect]
     Indication: INFECTION PROPHYLAXIS
     Dosage: 3 GRAM, INTRAVENOUS

REACTIONS (1)
  - HAEMORRHAGE [None]
